FAERS Safety Report 4429561-3 (Version None)
Quarter: 2004Q3

REPORT INFORMATION
  Report Type: 
  Country: None (occurrence: None)
  Receive Date: 20040819
  Receipt Date: 20040809
  Transmission Date: 20050211
  Serious: Yes (Other)
  Sender: FDA-Public Use
  Company Number: GBWYE780225MAY04

PATIENT
  Age: 55 Year
  Sex: Female

DRUGS (7)
  1. AUGMENTIN '125' [Suspect]
     Route: 065
  2. PREMARIN [Suspect]
     Route: 065
  3. CO-DYDRAMOL [Suspect]
     Route: 065
  4. FLUOXETINE [Suspect]
     Route: 065
  5. METHOTREXATE [Suspect]
     Route: 065
  6. ROFECOXIB [Suspect]
     Route: 065
  7. HUMIRA [Suspect]
     Route: 065

REACTIONS (1)
  - EYE HAEMORRHAGE [None]
